FAERS Safety Report 6675140-7 (Version None)
Quarter: 2010Q2

REPORT INFORMATION
  Report Type: 
  Country: None (occurrence: None)
  Receive Date: 20100409
  Receipt Date: 20100329
  Transmission Date: 20101027
  Serious: Yes (Other)
  Sender: FDA-Public Use
  Company Number: CH-PFIZER INC-2010039540

PATIENT
  Age: 12 Year
  Sex: Female

DRUGS (2)
  1. ZOLOFT [Suspect]
     Dosage: 25 MG, 1X/DAY
  2. ZOLOFT [Suspect]
     Dosage: 50 MG, 1X/DAY

REACTIONS (2)
  - AGGRESSION [None]
  - OBSESSIVE-COMPULSIVE DISORDER [None]
